FAERS Safety Report 6028297-5 (Version None)
Quarter: 2009Q1

REPORT INFORMATION
  Report Type: 
  Country: None (occurrence: None)
  Receive Date: 20090106
  Receipt Date: 20081229
  Transmission Date: 20090719
  Serious: Yes (Death, Hospitalization)
  Sender: FDA-Public Use
  Company Number: IN-ELI_LILLY_AND_COMPANY-IN200812006015

PATIENT
  Sex: Male

DRUGS (1)
  1. GEMCITABINE HCL [Suspect]
     Indication: LUNG NEOPLASM MALIGNANT
     Dosage: 1.4 G, DAY 1
     Route: 042

REACTIONS (2)
  - DEATH [None]
  - PNEUMONIA [None]
